FAERS Safety Report 10062450 (Version 3)
Quarter: 2014Q2

REPORT INFORMATION
  Report Type: Report from Study
  Country: US (occurrence: US)
  Receive Date: 20140407
  Receipt Date: 20140501
  Transmission Date: 20141212
  Serious: Yes (Hospitalization, Other)
  Sender: FDA-Public Use
  Company Number: US-SA-LEUK-1000219

PATIENT
  Age: 71 Year
  Sex: Male
  Weight: 92.5 kg

DRUGS (35)
  1. SARGRAMOSTIM [Suspect]
     Indication: MALIGNANT MELANOMA
     Dosage: 250 MCG, QD
     Route: 058
     Dates: start: 20111004, end: 20111018
  2. SARGRAMOSTIM [Suspect]
     Indication: MALIGNANT MELANOMA
     Dosage: 250 MCG, QD
     Route: 058
     Dates: start: 20110913, end: 20110926
  3. SARGRAMOSTIM [Suspect]
     Indication: MALIGNANT MELANOMA
     Dosage: 250 MCG, QD
     Route: 058
     Dates: start: 20110823, end: 20110905
  4. SARGRAMOSTIM [Suspect]
     Indication: MALIGNANT MELANOMA
     Dosage: 250 MCG, QD
     Route: 058
     Dates: start: 20110802, end: 20110815
  5. SARGRAMOSTIM [Suspect]
     Indication: MALIGNANT MELANOMA
     Dosage: 250 MCG/DAY, ON DAY 1-14
     Route: 058
     Dates: end: 20111107
  6. IPILIMUMAB [Suspect]
     Indication: MALIGNANT MELANOMA
     Dosage: 10 MG/KG, ONCE
     Route: 042
     Dates: start: 20111004, end: 20111004
  7. IPILIMUMAB [Suspect]
     Indication: MALIGNANT MELANOMA
     Dosage: 10 MG/KG, ONCE
     Route: 042
     Dates: start: 20110913, end: 20110913
  8. IPILIMUMAB [Suspect]
     Indication: MALIGNANT MELANOMA
     Dosage: 10 MG/KG, ONCE
     Route: 042
     Dates: start: 20110823, end: 20110823
  9. IPILIMUMAB [Suspect]
     Indication: MALIGNANT MELANOMA
     Dosage: 10 MG/KG, ONCE
     Route: 042
     Dates: start: 20110802, end: 20110802
  10. IPILIMUMAB [Suspect]
     Indication: MALIGNANT MELANOMA
     Dosage: 10 MG/KG, 90 MINUTES ON DAY 1, Q12 WEEKS?TOTAL DOSE ADMINISTERED: 917 MG
     Route: 042
     Dates: start: 20120612, end: 20120612
  11. LORAZEPAM [Concomitant]
     Indication: ANXIETY
     Dosage: 1 MG, UNK
     Route: 048
  12. LORAZEPAM [Concomitant]
     Indication: INSOMNIA
     Dosage: 1 MG, UNK
     Route: 048
  13. CLOBETASOL [Concomitant]
     Dosage: ONE APPLICATION
     Route: 061
  14. OMEPRAZOLE [Concomitant]
     Dosage: 20 MG, BID
     Route: 048
     Dates: end: 20120618
  15. HYDROMORPHONE [Concomitant]
  16. CORTICOTROPIN [Concomitant]
     Dosage: 250 MCG, UNK, SD ONE
     Route: 042
  17. DIPHENHYDRAMINE HYDROCHLORIDE [Concomitant]
     Dosage: 25 MG, UNK, SD ONE
     Route: 048
  18. DOCUSATE SODIUM [Concomitant]
     Dosage: 100 MG, BID
     Route: 048
  19. ENOXAPARIN SODIUM [Concomitant]
     Dosage: 40 MG, QD
     Route: 059
  20. FAMOTIDINE [Concomitant]
     Dosage: 20 MG, QD
     Route: 048
  21. GENTAMICIN SULFATE [Concomitant]
     Dosage: 1-2 DROPS EACH EYE, Q4HR
     Route: 047
  22. NAPHAZOLINE HYDROCHLORIDE/PHENIRAMINE MALEATE [Concomitant]
     Dosage: 1-2 DROPS EACH EYE, 28 HOURS
     Route: 047
  23. ONDANSETRON HYDROCHLORIDE [Concomitant]
     Dosage: 4 MG, Q8HR
     Route: 042
  24. OXYCODONE HYDROCHLORIDE [Concomitant]
     Dosage: 5-10 MG, Q6HR
     Route: 048
  25. OXYCODONE HYDROCHLORIDE [Concomitant]
     Dosage: 5 MG, Q4HR
     Route: 048
     Dates: end: 20120617
  26. POLYMYXIN B SULFATE/TRIMETHOPRIM SULFATE [Concomitant]
     Dosage: 1 DROP EACH EYE, Q3HR
     Route: 047
  27. PREDNISONE [Concomitant]
     Dosage: 5 MG, UNK, SD ONE
     Route: 048
  28. PREDNISONE [Concomitant]
     Dosage: UNK, LOW DOSE
     Route: 065
     Dates: start: 20120619
  29. SODIUM CHLORIDE [Concomitant]
     Dosage: 1000 ML, Q10HR
     Route: 042
  30. ZOLPIDEM TARTRATE [Concomitant]
     Dosage: 10 MG, UNK
     Route: 048
  31. FAMOTIDINE [Concomitant]
     Dosage: 20 MG, ONCE
     Route: 042
  32. FAMOTIDINE [Concomitant]
     Dosage: 20 MG, ONCE
     Route: 042
  33. FAMOTIDINE [Concomitant]
     Dosage: 50 MG, 100ML/ HR
     Route: 042
  34. SODIUM CHLORIDE [Concomitant]
     Dosage: 1000 ML, Q1HR
     Route: 042
  35. SODIUM CHLORIDE [Concomitant]
     Dosage: 1000 ML, Q1HR
     Route: 042

REACTIONS (36)
  - Hepatic steatosis [Unknown]
  - Myocardial infarction [Unknown]
  - Pulmonary oedema [Unknown]
  - Angina unstable [Unknown]
  - Metastatic malignant melanoma [Unknown]
  - Cholecystitis [Recovered/Resolved]
  - Abdominal pain [Unknown]
  - Abdominal pain [Recovered/Resolved]
  - Abdominal pain [Recovered/Resolved]
  - Pneumonia [Unknown]
  - Aspartate aminotransferase increased [Unknown]
  - Aspartate aminotransferase increased [Recovered/Resolved]
  - Alanine aminotransferase increased [Unknown]
  - Alanine aminotransferase increased [Recovered/Resolved]
  - Lung disorder [Unknown]
  - Adrenal insufficiency [Unknown]
  - Enterocolitis [Unknown]
  - Fatigue [Recovered/Resolved]
  - Dyspnoea [Recovered/Resolved]
  - Abdominal pain [Unknown]
  - Transaminases increased [Unknown]
  - Sinus tachycardia [Unknown]
  - Rhinorrhoea [Unknown]
  - Sinus congestion [Unknown]
  - Cough [Unknown]
  - Nausea [Not Recovered/Not Resolved]
  - Malaise [Unknown]
  - Vomiting [Unknown]
  - Dizziness [Unknown]
  - Headache [Unknown]
  - Anxiety [Unknown]
  - Abdominal pain [Recovered/Resolved]
  - Abdominal pain [Recovered/Resolved]
  - Syncope [Unknown]
  - Hypotension [Unknown]
  - Blood alkaline phosphatase increased [Recovered/Resolved]
